FAERS Safety Report 8163616-5 (Version None)
Quarter: 2012Q1

REPORT INFORMATION
  Report Type: 
  Country: None (occurrence: None)
  Receive Date: 20120224
  Receipt Date: 20120222
  Transmission Date: 20120608
  Serious: Yes (Other)
  Sender: FDA-Public Use
  Company Number: US-PFIZER INC-2012047782

PATIENT
  Sex: Male
  Weight: 56.689 kg

DRUGS (4)
  1. LIPITOR [Suspect]
     Indication: BLOOD CHOLESTEROL INCREASED
     Dosage: UNK
     Dates: start: 19960101, end: 20120116
  2. ATORVASTATIN CALCIUM [Suspect]
     Indication: BLOOD CHOLESTEROL INCREASED
     Dosage: 10 MG, DAILY
     Dates: start: 20120117, end: 20120119
  3. HYDROCHLOROTHIAZIDE [Concomitant]
     Indication: HYPERTENSION
     Dosage: 10 MG, DAILY
  4. BENAZEPRIL [Concomitant]
     Indication: HYPERTENSION
     Dosage: 10 MG, DAILY

REACTIONS (6)
  - HEADACHE [None]
  - PAIN IN EXTREMITY [None]
  - INCORRECT DOSE ADMINISTERED [None]
  - NECK PAIN [None]
  - ARTHRALGIA [None]
  - BLOOD PRESSURE INCREASED [None]
